FAERS Safety Report 13210707 (Version 1)
Quarter: 2017Q1

REPORT INFORMATION
  Report Type: Spontaneous
  Country: US (occurrence: US)
  Receive Date: 20170209
  Receipt Date: 20170209
  Transmission Date: 20170428
  Serious: Yes (Other)
  Sender: FDA-Public Use
  Company Number: None

PATIENT
  Age: 76 Year
  Sex: Female
  Weight: 69.75 kg

DRUGS (21)
  1. SYNTHROID [Concomitant]
     Active Substance: LEVOTHYROXINE SODIUM
  2. ZITHROMAX [Concomitant]
     Active Substance: AZITHROMYCIN DIHYDRATE
  3. PAIN PUMP [Concomitant]
     Active Substance: DEVICE
  4. MVI [Concomitant]
     Active Substance: VITAMINS
  5. IMMUNOSUPPRESSANTS [Concomitant]
     Active Substance: UNSPECIFIED INGREDIENT
  6. QUTENZA [Suspect]
     Active Substance: CAPSAICIN
     Indication: PAIN
     Dates: start: 20161209, end: 20161209
  7. PREDNISONE. [Concomitant]
     Active Substance: PREDNISONE
  8. FENTORA [Concomitant]
     Active Substance: FENTANYL CITRATE
  9. CALCIUM [Concomitant]
     Active Substance: CALCIUM
  10. VITAMIN C [Concomitant]
     Active Substance: ASCORBIC ACID
  11. LEXAPRO [Concomitant]
     Active Substance: ESCITALOPRAM OXALATE
  12. MG [Concomitant]
     Active Substance: MAGNESIUM
  13. BACTRIM [Concomitant]
     Active Substance: SULFAMETHOXAZOLE\TRIMETHOPRIM
  14. KEPPRA [Concomitant]
     Active Substance: LEVETIRACETAM
  15. DETROL [Concomitant]
     Active Substance: TOLTERODINE TARTRATE
  16. VITAMIN D [Concomitant]
     Active Substance: CHOLECALCIFEROL
  17. LIPITOR [Concomitant]
     Active Substance: ATORVASTATIN CALCIUM
  18. PRILOSEC [Concomitant]
     Active Substance: OMEPRAZOLE MAGNESIUM
  19. ESTRADIOL. [Concomitant]
     Active Substance: ESTRADIOL
  20. LISINOPRIL. [Concomitant]
     Active Substance: LISINOPRIL
  21. MIACALCIN [Concomitant]
     Active Substance: CALCITONIN SALMON

REACTIONS (3)
  - Condition aggravated [None]
  - Pain [None]
  - Lymphoedema [None]

NARRATIVE: CASE EVENT DATE: 20161209
